FAERS Safety Report 24782996 (Version 1)
Quarter: 2024Q4

REPORT INFORMATION
  Report Type: Spontaneous
  Country: US (occurrence: US)
  Receive Date: 20241227
  Receipt Date: 20241227
  Transmission Date: 20250114
  Serious: Yes (Death)
  Sender: OTSUKA
  Company Number: US-OTSUKA-2024_034613

PATIENT
  Age: 39 Year
  Sex: Male
  Weight: 79.4 kg

DRUGS (1)
  1. SAMSCA [Suspect]
     Active Substance: TOLVAPTAN
     Indication: Product used for unknown indication
     Dosage: 1 DF, QD  [15 MG ONE TABLET DAILY THOUGH FEEDING TUBE (G-TUBE)])
     Route: 048
     Dates: start: 20240626

REACTIONS (1)
  - Fall [Fatal]

NARRATIVE: CASE EVENT DATE: 20241218
